FAERS Safety Report 10231659 (Version 1)
Quarter: 2014Q2

REPORT INFORMATION
  Report Type: Spontaneous
  Country: US (occurrence: US)
  Receive Date: 20140611
  Receipt Date: 20140611
  Transmission Date: 20141212
  Serious: Yes (Other)
  Sender: FDA-Public Use
  Company Number: PHHY2014US068246

PATIENT
  Age: 34 Year
  Sex: Female

DRUGS (12)
  1. CHLORPROMAZINE [Suspect]
     Indication: BIPOLAR I DISORDER
  2. TRIFLUOPERAZINE [Suspect]
     Indication: BIPOLAR I DISORDER
  3. HALOPERIDOL [Suspect]
     Indication: BIPOLAR I DISORDER
  4. RISPERIDONE [Suspect]
     Indication: BIPOLAR I DISORDER
  5. QUETIAPINE [Suspect]
     Indication: BIPOLAR I DISORDER
  6. NORTRIPTYLINE [Suspect]
     Indication: BIPOLAR I DISORDER
  7. DESIPRAMINE [Suspect]
     Indication: BIPOLAR I DISORDER
  8. CLOMIPRAMINE [Suspect]
     Indication: BIPOLAR I DISORDER
  9. FLUOXETINE [Suspect]
     Indication: BIPOLAR I DISORDER
  10. PAROXETINE [Suspect]
     Indication: BIPOLAR I DISORDER
  11. BUSPIRONE [Suspect]
     Indication: BIPOLAR I DISORDER
  12. VENLAFAXINE [Suspect]
     Indication: BIPOLAR I DISORDER

REACTIONS (3)
  - Narcolepsy [Unknown]
  - Sedation [Unknown]
  - Drug intolerance [Unknown]
